FAERS Safety Report 4373918-6 (Version None)
Quarter: 2004Q2

REPORT INFORMATION
  Report Type: 
  Country: None (occurrence: None)
  Receive Date: 20040604
  Receipt Date: 20040526
  Transmission Date: 20050107
  Serious: Yes (Hospitalization)
  Sender: FDA-Public Use
  Company Number: 430005M04USA

PATIENT
  Age: 44 Year
  Sex: Female
  Weight: 52.1637 kg

DRUGS (3)
  1. NOVANTRONE [Suspect]
     Indication: MULTIPLE SCLEROSIS
     Dosage: 12 MG/M2, INTRAVENOUS
     Route: 042
     Dates: start: 20000601, end: 20020201
  2. METHOTREXATE [Concomitant]
  3. CYCLOPHOSPHAMIDE [Concomitant]

REACTIONS (4)
  - CHILLS [None]
  - PROLYMPHOCYTIC LEUKAEMIA [None]
  - PYREXIA [None]
  - WEIGHT DECREASED [None]
